FAERS Safety Report 21301921 (Version 18)
Quarter: 2023Q4

REPORT INFORMATION
  Report Type: Spontaneous
  Country: US (occurrence: US)
  Receive Date: 20220907
  Receipt Date: 20231010
  Transmission Date: 20240110
  Serious: Yes (Other)
  Sender: FDA-Public Use
  Company Number: US-GLAXOSMITHKLINE-US2022AMR127410

PATIENT

DRUGS (6)
  1. ZEJULA [Suspect]
     Active Substance: NIRAPARIB
     Indication: Ovarian cancer
     Dosage: 200 MG, QD
  2. ZEJULA [Suspect]
     Active Substance: NIRAPARIB
     Dosage: 100 MG, QD
     Dates: start: 20221020, end: 20230510
  3. ZEJULA [Suspect]
     Active Substance: NIRAPARIB
     Dosage: 100 MG, QD, AM
  4. ZEJULA [Suspect]
     Active Substance: NIRAPARIB
     Dosage: 100 MG, QD
  5. ZEJULA [Suspect]
     Active Substance: NIRAPARIB
     Indication: Ovarian cancer
     Dosage: 100 MG, QD
  6. REPATHA [Suspect]
     Active Substance: EVOLOCUMAB
     Indication: Product used for unknown indication
     Dosage: UNK

REACTIONS (28)
  - Neuropathy peripheral [Unknown]
  - Diverticulitis [Not Recovered/Not Resolved]
  - Abdominal pain upper [Not Recovered/Not Resolved]
  - Dyspepsia [Unknown]
  - Insomnia [Unknown]
  - Headache [Unknown]
  - Carpal tunnel syndrome [Unknown]
  - Musculoskeletal discomfort [Unknown]
  - White blood cell count decreased [Not Recovered/Not Resolved]
  - Red blood cell count decreased [Unknown]
  - Pain in extremity [Unknown]
  - Hypoaesthesia [Unknown]
  - Fatigue [Not Recovered/Not Resolved]
  - Laboratory test abnormal [Recovered/Resolved]
  - Neuralgia [Unknown]
  - Blood pressure increased [Unknown]
  - Urinary tract infection [Unknown]
  - Sinusitis [Recovering/Resolving]
  - Bronchitis [Unknown]
  - Pruritus [Unknown]
  - Feeling abnormal [Unknown]
  - Constipation [Not Recovered/Not Resolved]
  - Rash [Recovered/Resolved]
  - Neoplasm [Unknown]
  - Pain [Unknown]
  - Abdominal pain [Not Recovered/Not Resolved]
  - Carbohydrate antigen 125 increased [Unknown]
  - Product dose omission issue [Unknown]

NARRATIVE: CASE EVENT DATE: 20230501
